FAERS Safety Report 24738205 (Version 1)
Quarter: 2024Q4

REPORT INFORMATION
  Report Type: Spontaneous
  Country: US (occurrence: US)
  Receive Date: 20241216
  Receipt Date: 20241216
  Transmission Date: 20250115
  Serious: Yes (Other)
  Sender: DR REDDYS
  Company Number: US-DRL-USA-LIT/USA/24/0018269

PATIENT
  Age: 2 Year
  Sex: Male

DRUGS (5)
  1. TOPOTECAN [Suspect]
     Active Substance: TOPOTECAN HYDROCHLORIDE
     Indication: Retinoblastoma
     Dosage: INTRAVITREAL
     Dates: start: 202211
  2. MELPHALAN [Suspect]
     Active Substance: MELPHALAN
     Indication: Retinoblastoma
     Dosage: INTRAVITREAL
     Dates: start: 202212
  3. CISPLATIN [Suspect]
     Active Substance: CISPLATIN
     Indication: Retinoblastoma
     Dosage: SYSTEMIC
     Dates: start: 202209
  4. VINCRISTINE [Suspect]
     Active Substance: VINCRISTINE
     Indication: Retinoblastoma
     Dosage: SYSTEMIC
     Dates: start: 202209
  5. CYCLOPHOSPHAMIDE [Suspect]
     Active Substance: CYCLOPHOSPHAMIDE
     Indication: Retinoblastoma
     Dosage: SYSTEMIC
     Dates: start: 202209

REACTIONS (2)
  - Cytomegalovirus chorioretinitis [Recovered/Resolved]
  - Product use in unapproved indication [Unknown]
